APPROVED DRUG PRODUCT: ETODOLAC
Active Ingredient: ETODOLAC
Strength: 500MG
Dosage Form/Route: TABLET;ORAL
Application: A076004 | Product #002 | TE Code: AB
Applicant: APOTEX INC
Approved: Dec 3, 2002 | RLD: No | RS: No | Type: RX